FAERS Safety Report 6857216-4 (Version None)
Quarter: 2010Q3

REPORT INFORMATION
  Report Type: 
  Country: None (occurrence: None)
  Receive Date: 20100719
  Receipt Date: 20100714
  Transmission Date: 20110219
  Serious: Yes (Other)
  Sender: FDA-Public Use
  Company Number: TR-GILEAD-2010-0029105

PATIENT
  Sex: Male

DRUGS (2)
  1. VIREAD [Suspect]
     Indication: HEPATITIS B
     Route: 048
     Dates: start: 20091220, end: 20091221
  2. PROPRANOLOL [Concomitant]

REACTIONS (1)
  - STEVENS-JOHNSON SYNDROME [None]
